FAERS Safety Report 9300052 (Version 1)
Quarter: 2013Q1

REPORT INFORMATION
  Report Type: Spontaneous
  Country: US (occurrence: None)
  Receive Date: 20130107
  Receipt Date: 20130107
  Transmission Date: 20140127
  Serious: No
  Sender: FDA-Public Use
  Company Number: PHEH2012US022005

PATIENT
  Age: 37 Year
  Sex: Female

DRUGS (1)
  1. GILENYA (FTY) CAPSULE, 0.5MG [Suspect]
     Indication: MULTIPLE SCLEROSIS
     Route: 048
     Dates: start: 20120917

REACTIONS (5)
  - Abnormal dreams [None]
  - Dry mouth [None]
  - Nasopharyngitis [None]
  - Head discomfort [None]
  - Cough [None]
